FAERS Safety Report 5551021-7 (Version None)
Quarter: 2007Q4

REPORT INFORMATION
  Report Type: 
  Country: None (occurrence: None)
  Receive Date: 20071210
  Receipt Date: 20071126
  Transmission Date: 20080405
  Serious: Yes (Disabling)
  Sender: FDA-Public Use
  Company Number: MPS1-10788

PATIENT
  Age: 5 Year
  Sex: Male
  Weight: 25.4 kg

DRUGS (1)
  1. ALDURAZYME [Suspect]
     Indication: MUCOPOLYSACCHARIDOSIS I
     Dosage: 1 MG/KG QWK IV
     Route: 042
     Dates: start: 20041012

REACTIONS (2)
  - BLINDNESS [None]
  - INTRACRANIAL PRESSURE INCREASED [None]
